FAERS Safety Report 26017512 (Version 1)
Quarter: 2025Q4

REPORT INFORMATION
  Report Type: Spontaneous
  Country: JP (occurrence: JP)
  Receive Date: 20251110
  Receipt Date: 20251110
  Transmission Date: 20260117
  Serious: Yes (Life-Threatening, Hospitalization, Other)
  Sender: AMGEN
  Company Number: JP-ONO-2025JP020229

PATIENT
  Age: 69 Year
  Sex: Female

DRUGS (5)
  1. PARSABIV [Interacting]
     Active Substance: ETELCALCETIDE HYDROCHLORIDE
     Indication: Hyperparathyroidism secondary
     Dosage: UNK
     Route: 010
  2. PARSABIV [Interacting]
     Active Substance: ETELCALCETIDE HYDROCHLORIDE
     Dosage: UNK
     Route: 010
  3. PARSABIV [Interacting]
     Active Substance: ETELCALCETIDE HYDROCHLORIDE
     Dosage: 15 MG
     Route: 010
     Dates: end: 20250922
  4. DENOSUMAB [Interacting]
     Active Substance: DENOSUMAB
     Indication: Product used for unknown indication
     Dosage: UNKNOWN, MONTHLY
     Route: 065
     Dates: end: 202501
  5. DENOSUMAB [Interacting]
     Active Substance: DENOSUMAB
     Dosage: UNKNOWN, MONTHLY
     Route: 065
     Dates: start: 202508, end: 202509

REACTIONS (5)
  - Cerebral haemorrhage [Recovering/Resolving]
  - Blood pressure increased [Unknown]
  - Blood calcium increased [Unknown]
  - Blood calcium decreased [Unknown]
  - Drug interaction [Unknown]

NARRATIVE: CASE EVENT DATE: 20250401
